FAERS Safety Report 8914974 (Version 1)
Quarter: 2012Q4

REPORT INFORMATION
  Report Type: 
  Country: US (occurrence: US)
  Receive Date: 20121119
  Receipt Date: 20121119
  Transmission Date: 20130627
  Serious: No
  Sender: FDA-Public Use
  Company Number: US-009507513-1211USA001972

PATIENT
  Age: 18 Year
  Sex: Female
  Weight: 58.96 kg

DRUGS (1)
  1. IMPLANON [Suspect]
     Indication: CONTRACEPTION
     Dosage: every 3 years
     Route: 059
     Dates: start: 20100519, end: 20121026

REACTIONS (2)
  - Muscular weakness [Not Recovered/Not Resolved]
  - Medical device complication [Recovered/Resolved]
